FAERS Safety Report 10537671 (Version 1)
Quarter: 2014Q4

REPORT INFORMATION
  Report Type: Report from Study
  Country: BR (occurrence: BR)
  Receive Date: 20141023
  Receipt Date: 20141023
  Transmission Date: 20150529
  Serious: Yes (Death, Life-Threatening, Hospitalization, Other)
  Sender: FDA-Public Use
  Company Number: PHHY2014BR136786

PATIENT
  Age: 74 Year
  Sex: Male

DRUGS (4)
  1. AFINITOR [Suspect]
     Active Substance: EVEROLIMUS
     Indication: OFF LABEL USE
     Dosage: 5 MG, QD
     Route: 065
     Dates: start: 2013
  2. AFINITOR [Suspect]
     Active Substance: EVEROLIMUS
     Indication: HEPATIC CANCER
     Dosage: 10 MG, QD
     Route: 065
     Dates: start: 201108, end: 2013
  3. ZOMETA [Suspect]
     Active Substance: ZOLEDRONIC ACID
     Indication: METASTASES TO BONE
     Dosage: 1 DF, QMO
     Route: 065
  4. SOMATOSTATIN [Suspect]
     Active Substance: SOMATOSTATIN
     Indication: METASTASES TO BONE
     Dosage: 1 UKN, QMO
     Route: 065

REACTIONS (11)
  - Fatigue [Recovered/Resolved]
  - Pain in extremity [Unknown]
  - Cardiac arrest [Fatal]
  - Mouth injury [Unknown]
  - Spinal pain [Unknown]
  - Cardiac disorder [Unknown]
  - Dysphagia [Unknown]
  - Pulmonary oedema [Recovered/Resolved]
  - Metastases to bone [Unknown]
  - Lymphatic disorder [Unknown]
  - Pruritus [Unknown]

NARRATIVE: CASE EVENT DATE: 201405
